FAERS Safety Report 6307716-0 (Version None)
Quarter: 2009Q3

REPORT INFORMATION
  Report Type: 
  Country: None (occurrence: None)
  Receive Date: 20090813
  Receipt Date: 20090724
  Transmission Date: 20100115
  Serious: Yes (Hospitalization)
  Sender: FDA-Public Use
  Company Number: PHHY2009RU30923

PATIENT
  Age: 3 Year
  Sex: Female

DRUGS (1)
  1. DIOVAN [Suspect]
     Dosage: 1 TABLET (80 MG)
     Dates: start: 20090724

REACTIONS (3)
  - ACCIDENTAL EXPOSURE [None]
  - ASTHENIA [None]
  - GASTRIC LAVAGE [None]
